FAERS Safety Report 9621645 (Version 1)
Quarter: 2013Q4

REPORT INFORMATION
  Report Type: Spontaneous
  Country: GB (occurrence: GB)
  Receive Date: 20131015
  Receipt Date: 20131015
  Transmission Date: 20140711
  Serious: Yes (Other)
  Sender: FDA-Public Use
  Company Number: GB-MYLANLABS-2013S1022393

PATIENT
  Age: 70 Year
  Sex: Male

DRUGS (9)
  1. ALENDRONATE [Suspect]
     Indication: PRODUCT USED FOR UNKNOWN INDICATION
  2. RISEDRONATE [Suspect]
     Dates: start: 20130804, end: 20130804
  3. ADCAL /00108001/ [Concomitant]
     Indication: CALCIUM DEFICIENCY
  4. ADCAL /00108001/ [Concomitant]
     Indication: VITAMIN D DEFICIENCY
  5. BENDROFLUMETHIAZIDE [Concomitant]
     Indication: FLUID RETENTION
  6. GLUCOSAMINE SULPHATE [Concomitant]
     Indication: PRODUCT USED FOR UNKNOWN INDICATION
  7. PARACETAMOL [Concomitant]
     Indication: PRODUCT USED FOR UNKNOWN INDICATION
  8. PREDNISOLONE [Concomitant]
     Indication: OSTEOARTHRITIS
  9. PREDNISOLONE [Concomitant]
     Indication: RHEUMATOID ARTHRITIS

REACTIONS (7)
  - Conjunctivitis [Not Recovered/Not Resolved]
  - Eye disorder [Not Recovered/Not Resolved]
  - Melanocytic naevus [Recovered/Resolved]
  - Oral pain [Recovered/Resolved]
  - Oral mucosal exfoliation [Recovered/Resolved]
  - Scab [Recovered/Resolved]
  - Erythema [Recovered/Resolved]
